FAERS Safety Report 18710810 (Version 1)
Quarter: 2021Q1

REPORT INFORMATION
  Report Type: Spontaneous
  Country: US (occurrence: US)
  Receive Date: 20210107
  Receipt Date: 20210107
  Transmission Date: 20210419
  Serious: No
  Sender: FDA-Public Use
  Company Number: NVSC2020US348301

PATIENT
  Sex: Female

DRUGS (2)
  1. RITALIN [Suspect]
     Active Substance: METHYLPHENIDATE HYDROCHLORIDE
     Indication: ATTENTION DEFICIT HYPERACTIVITY DISORDER
     Dosage: UNK
     Route: 065
  2. DAYTRANA [Suspect]
     Active Substance: METHYLPHENIDATE
     Indication: ATTENTION DEFICIT HYPERACTIVITY DISORDER
     Dosage: UNK
     Route: 065
     Dates: start: 201611, end: 201711

REACTIONS (11)
  - Skin exfoliation [Unknown]
  - Manufacturing process control procedure incorrectly performed [Unknown]
  - Drug delivery system issue [Unknown]
  - Bruxism [Unknown]
  - Product supply issue [Unknown]
  - Decreased appetite [Unknown]
  - Product adhesion issue [Unknown]
  - Product dose omission issue [Unknown]
  - Product storage error [Unknown]
  - Eating disorder [Unknown]
  - Weight increased [Unknown]
